FAERS Safety Report 10546660 (Version 1)
Quarter: 2014Q4

REPORT INFORMATION
  Report Type: Spontaneous
  Country: US (occurrence: US)
  Receive Date: 20141027
  Receipt Date: 20141027
  Transmission Date: 20150529
  Serious: No
  Sender: FDA-Public Use
  Company Number: US-PFIZER INC-2014294771

PATIENT
  Age: 80 Year
  Sex: Female
  Weight: 56.69 kg

DRUGS (1)
  1. FLECTOR [Suspect]
     Active Substance: DICLOFENAC EPOLAMINE
     Dosage: UNK

REACTIONS (3)
  - Feeling hot [Unknown]
  - Pruritus [Unknown]
  - Hypersensitivity [Unknown]
